FAERS Safety Report 9167628 (Version 1)
Quarter: 2013Q1

REPORT INFORMATION
  Report Type: Spontaneous
  Country: MX (occurrence: MX)
  Receive Date: 20130318
  Receipt Date: 20130318
  Transmission Date: 20140127
  Serious: Yes (Hospitalization)
  Sender: FDA-Public Use
  Company Number: PHHY2013MX024267

PATIENT
  Age: 67 Year
  Sex: Female

DRUGS (4)
  1. EXFORGE HCT [Suspect]
     Indication: HYPERTENSION
     Dosage: 1 DF (320 MG VALS, 10 MG AMLO, 12.5 MG HCT), DAILY
     Route: 048
     Dates: start: 201301
  2. INSULIN [Concomitant]
     Indication: DIABETES MELLITUS
     Dosage: UNK UKN, UNK
     Dates: start: 2009
  3. PLAVIX [Concomitant]
     Indication: VENOUS INSUFFICIENCY
     Dosage: 1 UKN, DAILY
  4. VENALOT [Concomitant]
     Indication: VENOUS INSUFFICIENCY
     Dosage: 1 UKN, DAILY

REACTIONS (2)
  - Tendon rupture [Recovered/Resolved]
  - Malaise [Unknown]
